FAERS Safety Report 24064615 (Version 1)
Quarter: 2024Q3

REPORT INFORMATION
  Report Type: Spontaneous
  Country: CN (occurrence: CN)
  Receive Date: 20240709
  Receipt Date: 20240709
  Transmission Date: 20241016
  Serious: Yes (Hospitalization, Other)
  Sender: UCB
  Company Number: None

PATIENT
  Age: 65 Year
  Sex: Male
  Weight: 70 kg

DRUGS (4)
  1. VIMPAT [Suspect]
     Active Substance: LACOSAMIDE
     Indication: Epilepsy
     Dosage: 25 MILLIGRAM, 2X/DAY (BID)
     Route: 048
     Dates: start: 20240625, end: 20240629
  2. BACLOFEN [Suspect]
     Active Substance: BACLOFEN
     Indication: Hypertonia
     Dosage: 5 MILLIGRAM, 2X/DAY (BID)
     Route: 048
     Dates: start: 20240627, end: 20240629
  3. GABAPENTIN [Concomitant]
     Active Substance: GABAPENTIN
     Indication: Hypertonia
     Dosage: 0.1 GRAM, 2X/DAY (BID)
     Route: 048
     Dates: start: 20240627, end: 20240629
  4. NADROPARIN CALCIUM [Concomitant]
     Active Substance: NADROPARIN CALCIUM
     Indication: Venous thrombosis
     Dosage: 4100 INTERNATIONAL UNIT, 2X/DAY (BID)
     Route: 058
     Dates: start: 20240627, end: 20240629

REACTIONS (2)
  - Hepatic function abnormal [Recovering/Resolving]
  - Condition aggravated [Unknown]

NARRATIVE: CASE EVENT DATE: 20240101
